FAERS Safety Report 8495492-5 (Version None)
Quarter: 2012Q3

REPORT INFORMATION
  Report Type: 
  Country: None (occurrence: None)
  Receive Date: 20120709
  Receipt Date: 20120628
  Transmission Date: 20120928
  Serious: Yes (Hospitalization)
  Sender: FDA-Public Use
  Company Number: US-ASTRAZENECA-2012SE27999

PATIENT
  Age: 69 Year
  Sex: Female

DRUGS (5)
  1. ATENOLOL [Concomitant]
     Route: 048
  2. CAPRELSA [Suspect]
     Indication: THYROID CANCER
     Route: 048
     Dates: start: 20120130, end: 20120621
  3. LEXAPRO [Concomitant]
     Route: 048
  4. SYNTHROID [Concomitant]
     Route: 048
  5. PROCHLORPERAZINE MALEATE [Concomitant]
     Dosage: PRN
     Route: 048

REACTIONS (3)
  - DYSGEUSIA [None]
  - ELECTROCARDIOGRAM QT PROLONGED [None]
  - DYSPNOEA [None]
